FAERS Safety Report 24114596 (Version 1)
Quarter: 2024Q3

REPORT INFORMATION
  Report Type: Spontaneous
  Country: SE (occurrence: SE)
  Receive Date: 20240720
  Receipt Date: 20240720
  Transmission Date: 20241017
  Serious: Yes (Hospitalization)
  Sender: AMGEN
  Company Number: SE-AMGEN-SWESP2024137955

PATIENT
  Age: 75 Year
  Sex: Female

DRUGS (11)
  1. PANITUMUMAB [Suspect]
     Active Substance: PANITUMUMAB
     Indication: Rectal cancer
     Dosage: UNK
     Route: 040
     Dates: start: 20240430
  2. FINACEA [Concomitant]
     Active Substance: AZELAIC ACID
     Dosage: UNK UNK, AS NECESSARY
     Dates: start: 20240430
  3. ACETAMINOPHEN [Concomitant]
     Active Substance: ACETAMINOPHEN
     Dosage: 2X3
     Route: 048
  4. OXALIPLATIN [Concomitant]
     Active Substance: OXALIPLATIN
     Dosage: UNK
     Route: 065
  5. LEVOTHYROXINE SODIUM [Concomitant]
     Active Substance: LEVOTHYROXINE SODIUM
     Dosage: 1X1
     Route: 048
  6. PROPYLESS [Concomitant]
     Dosage: UNK UNK, AS NECESSARY
     Route: 065
     Dates: start: 20240430
  7. CANDESARTAN [Concomitant]
     Active Substance: CANDESARTAN
     Dosage: 1X1
     Route: 048
  8. KALCIUMFOLINAT PERIVITA [Concomitant]
     Dosage: UNK
     Route: 065
  9. BETAPRED [Concomitant]
     Active Substance: BETAMETHASONE SODIUM PHOSPHATE
     Dosage: UNK
     Route: 065
  10. Tetralysal [Concomitant]
     Dosage: 1X2
     Route: 048
  11. FLUOROURACIL [Concomitant]
     Active Substance: FLUOROURACIL
     Dosage: UNK
     Route: 065

REACTIONS (20)
  - Bacterial infection [Recovering/Resolving]
  - Purulent discharge [Recovering/Resolving]
  - Rash erythematous [Recovering/Resolving]
  - Rash macular [Recovering/Resolving]
  - Rash vesicular [Recovering/Resolving]
  - Swelling of eyelid [Recovering/Resolving]
  - Infection [Recovering/Resolving]
  - Skin warm [Recovering/Resolving]
  - Facial pain [Not Recovered/Not Resolved]
  - Periorbital swelling [Unknown]
  - Skin tightness [Not Recovered/Not Resolved]
  - Swelling face [Recovering/Resolving]
  - Lacrimation increased [Unknown]
  - Dry skin [Unknown]
  - Dermatitis acneiform [Unknown]
  - Erythema [Unknown]
  - Oral disorder [Unknown]
  - Rash [Recovering/Resolving]
  - Pruritus [Unknown]
  - Genital rash [Unknown]

NARRATIVE: CASE EVENT DATE: 20240501
